FAERS Safety Report 7627988-X (Version None)
Quarter: 2011Q3

REPORT INFORMATION
  Report Type: 
  Country: None (occurrence: None)
  Receive Date: 20110722
  Receipt Date: 20110712
  Transmission Date: 20111222
  Serious: Yes (Hospitalization, Other)
  Sender: FDA-Public Use
  Company Number: US-BIOGENIDEC-2011BI020706

PATIENT
  Sex: Female

DRUGS (7)
  1. SIMVASTATIN [Concomitant]
  2. CLONAZEPAM [Concomitant]
  3. GABAPENTIN [Concomitant]
  4. CELEXA [Concomitant]
  5. VITAMIN D [Concomitant]
  6. LUNESTA [Concomitant]
  7. AVONEX [Suspect]
     Indication: MULTIPLE SCLEROSIS
     Route: 030
     Dates: start: 20100901

REACTIONS (5)
  - GASTROINTESTINAL NECROSIS [None]
  - GASTROINTESTINAL MALFORMATION [None]
  - LARGE INTESTINE PERFORATION [None]
  - HAEMOGLOBIN DECREASED [None]
  - GASTROINTESTINAL INJURY [None]
